FAERS Safety Report 6553809-2 (Version None)
Quarter: 2010Q1

REPORT INFORMATION
  Report Type: 
  Country: None (occurrence: None)
  Receive Date: 20100127
  Receipt Date: 20100115
  Transmission Date: 20100710
  Serious: Yes (Hospitalization)
  Sender: FDA-Public Use
  Company Number: FR-SANOFI-AVENTIS-2010SA002428

PATIENT
  Age: 66 Year
  Sex: Female
  Weight: 47 kg

DRUGS (10)
  1. PLAQUENIL [Suspect]
     Indication: RHEUMATOID ARTHRITIS
     Route: 048
     Dates: start: 20080701, end: 20090801
  2. CORTANCYL [Suspect]
     Indication: ANTISYNTHETASE SYNDROME
     Route: 048
     Dates: start: 20090201
  3. CORTANCYL [Suspect]
     Indication: RHEUMATOID ARTHRITIS
     Route: 048
     Dates: start: 20090201
  4. CORTANCYL [Suspect]
     Route: 048
     Dates: start: 20080501
  5. CORTANCYL [Suspect]
     Route: 048
     Dates: start: 20080501
  6. IMUREL [Suspect]
     Indication: ANTISYNTHETASE SYNDROME
     Route: 048
     Dates: start: 20090407, end: 20090505
  7. SOLU-MEDROL [Suspect]
     Indication: ANTISYNTHETASE SYNDROME
     Route: 040
     Dates: start: 20090728, end: 20090730
  8. ZOLEDRONIC ACID [Suspect]
     Indication: ANTISYNTHETASE SYNDROME
     Route: 042
     Dates: start: 20090130, end: 20090130
  9. INIPOMP [Concomitant]
  10. URSOLVAN [Concomitant]
     Dosage: DOSE:2 UNIT(S)
     Dates: end: 20080501

REACTIONS (3)
  - DYSPRAXIA [None]
  - JC VIRUS INFECTION [None]
  - PROGRESSIVE MULTIFOCAL LEUKOENCEPHALOPATHY [None]
